FAERS Safety Report 8229705-1 (Version None)
Quarter: 2012Q1

REPORT INFORMATION
  Report Type: 
  Country: None (occurrence: None)
  Receive Date: 20120322
  Receipt Date: 20120321
  Transmission Date: 20120608
  Serious: Yes (Life-Threatening, Hospitalization)
  Sender: FDA-Public Use
  Company Number: PHHO2011ES14442

PATIENT
  Sex: Male

DRUGS (2)
  1. FTY [Suspect]
     Indication: MULTIPLE SCLEROSIS
     Dosage: 0.5 MG, QD
     Route: 048
     Dates: start: 20110124
  2. MEMANTINE [Suspect]
     Indication: COGNITIVE DISORDER
     Dosage: 20 MG, QD
     Route: 048
     Dates: start: 20080101

REACTIONS (1)
  - ANGINA PECTORIS [None]
